FAERS Safety Report 14253163 (Version 1)
Quarter: 2017Q4

REPORT INFORMATION
  Report Type: Spontaneous
  Country: SI (occurrence: SI)
  Receive Date: 20171205
  Receipt Date: 20171205
  Transmission Date: 20180321
  Serious: Yes (Other)
  Sender: FDA-Public Use
  Company Number: SI-ASTRAZENECA-2017SF20433

PATIENT
  Age: 41 Year
  Sex: Male

DRUGS (8)
  1. SORVASTA [Suspect]
     Active Substance: ROSUVASTATIN CALCIUM
     Indication: HYPERCHOLESTEROLAEMIA
     Dosage: 30 MG, 1X PER DAY, IN THE EVENING
     Route: 048
     Dates: start: 201705
  2. SORVASTA [Suspect]
     Active Substance: ROSUVASTATIN CALCIUM
     Indication: HYPERCHOLESTEROLAEMIA
     Route: 048
  3. BRILIQUE [Concomitant]
     Active Substance: TICAGRELOR
     Indication: INFARCTION
     Dosage: UNK
  4. SORVASTA [Suspect]
     Active Substance: ROSUVASTATIN CALCIUM
     Indication: INFARCTION
     Dosage: 30 MG, 1X PER DAY, IN THE EVENING
     Route: 048
     Dates: start: 201705
  5. CONCOR [Concomitant]
     Active Substance: BISOPROLOL FUMARATE
     Indication: INFARCTION
     Dosage: UNK
  6. SORVASTA [Suspect]
     Active Substance: ROSUVASTATIN CALCIUM
     Indication: INFARCTION
     Route: 048
  7. ASPIRIN. [Concomitant]
     Active Substance: ASPIRIN
     Indication: INFARCTION
     Dosage: UNK
  8. NOLPAZA [Concomitant]
     Active Substance: PANTOPRAZOLE SODIUM
     Dosage: UNK

REACTIONS (3)
  - Muscular weakness [Unknown]
  - Joint dislocation [Unknown]
  - Tendon pain [Unknown]
